FAERS Safety Report 7433638-8 (Version None)
Quarter: 2011Q2

REPORT INFORMATION
  Report Type: 
  Country: None (occurrence: None)
  Receive Date: 20110422
  Receipt Date: 20110420
  Transmission Date: 20111010
  Serious: Yes (Hospitalization, Disabling, Other)
  Sender: FDA-Public Use
  Company Number: US-MERCK-1012USA02889

PATIENT
  Age: 44 Year
  Sex: Female
  Weight: 109 kg

DRUGS (5)
  1. FOSAMAX [Suspect]
     Indication: OSTEOPOROSIS
     Route: 048
     Dates: start: 19990101, end: 20100625
  2. AVANDIA [Concomitant]
     Indication: DIABETES MELLITUS
     Route: 065
     Dates: start: 20000101, end: 20070101
  3. ALTACE [Concomitant]
     Indication: DIABETES MELLITUS
     Route: 065
     Dates: start: 20000101, end: 20070101
  4. FOSAMAX [Suspect]
     Route: 048
     Dates: start: 19990101, end: 20100625
  5. METFORMIN [Concomitant]
     Indication: DIABETES MELLITUS
     Route: 065
     Dates: start: 20000101

REACTIONS (23)
  - RIB FRACTURE [None]
  - DEVICE FAILURE [None]
  - ARTHROPATHY [None]
  - SINUSITIS [None]
  - FRACTURE NONUNION [None]
  - COLONIC POLYP [None]
  - BENIGN BREAST LUMP REMOVAL [None]
  - TOOTH DISORDER [None]
  - FEMUR FRACTURE [None]
  - OBESITY [None]
  - RENAL CANCER [None]
  - HYPERTENSION [None]
  - FALL [None]
  - VITAMIN D DEFICIENCY [None]
  - BLOOD CHOLESTEROL INCREASED [None]
  - PULMONARY HILUM MASS [None]
  - DEPRESSION [None]
  - SPINAL DISORDER [None]
  - ANXIETY [None]
  - WRIST FRACTURE [None]
  - ROTATOR CUFF SYNDROME [None]
  - OSTEOARTHRITIS [None]
  - IMPAIRED HEALING [None]
